FAERS Safety Report 25098433 (Version 2)
Quarter: 2025Q2

REPORT INFORMATION
  Report Type: Report from Study
  Country: US (occurrence: US)
  Receive Date: 20250320
  Receipt Date: 20250513
  Transmission Date: 20250717
  Serious: No
  Sender: IPSEN BIOPHARMACEUTICALS, INC.
  Company Number: US-IPSEN Group, Research and Development-2025-05923

PATIENT
  Age: 76 Year
  Sex: Female
  Weight: 98.42 kg

DRUGS (1)
  1. IQIRVO [Suspect]
     Active Substance: ELAFIBRANOR
     Indication: Primary biliary cholangitis
     Dosage: 80 MG DAILY IN THE MORNING
     Route: 048
     Dates: start: 20250110, end: 20250425

REACTIONS (10)
  - Arthritis [Recovering/Resolving]
  - Hypoacusis [Unknown]
  - Abdominal distension [Unknown]
  - Joint swelling [Unknown]
  - Pruritus [Unknown]
  - Pain in extremity [Unknown]
  - Back pain [Unknown]
  - Dry mouth [Unknown]
  - Dyspnoea [Unknown]
  - Abdominal pain [Unknown]

NARRATIVE: CASE EVENT DATE: 20250301
